FAERS Safety Report 16005365 (Version 1)
Quarter: 2019Q1

REPORT INFORMATION
  Report Type: Spontaneous
  Country: US (occurrence: US)
  Receive Date: 20190226
  Receipt Date: 20190226
  Transmission Date: 20190418
  Serious: No
  Sender: FDA-Public Use
  Company Number: US-PFIZER INC-2019078951

PATIENT
  Age: 72 Year
  Sex: Male

DRUGS (2)
  1. PROCARDIA [Suspect]
     Active Substance: NIFEDIPINE
     Dosage: 60 MG, 1X/DAY
  2. PROCARDIA [Suspect]
     Active Substance: NIFEDIPINE
     Indication: HYPERTENSION
     Dosage: 30 MG, 1X/DAY

REACTIONS (1)
  - Drug ineffective for unapproved indication [Unknown]
